FAERS Safety Report 4476631-X (Version None)
Quarter: 2004Q4

REPORT INFORMATION
  Report Type: 
  Country: None (occurrence: None)
  Receive Date: 20041015
  Receipt Date: 20041015
  Transmission Date: 20050328
  Serious: Yes (Hospitalization)
  Sender: FDA-Public Use
  Company Number: None

PATIENT
  Age: 65 Year
  Sex: Male
  Weight: 71.4 kg

DRUGS (11)
  1. ATENOLOL [Suspect]
     Indication: HYPERTENSION
     Dosage: 25MG  QD  ORAL
     Route: 048
  2. TERAZOSIN HCL [Suspect]
     Indication: HYPERTENSION
     Dosage: 2MG   QHS   ORAL
     Route: 048
  3. ASPIRIN [Concomitant]
  4. CELECOXIB [Concomitant]
  5. ISOSORBIDE DINITRATE [Concomitant]
  6. METHOCARBAMOL [Concomitant]
  7. NITROGLYCERIN -SL- [Concomitant]
  8. RANITIDINE [Concomitant]
  9. SERTRALINE HCL [Concomitant]
  10. SIMVASTATIN [Concomitant]
  11. VALSARTAN [Concomitant]

REACTIONS (6)
  - BLOOD PRESSURE SYSTOLIC DECREASED [None]
  - CHEST PAIN [None]
  - DIZZINESS [None]
  - HEART RATE DECREASED [None]
  - HYPERHIDROSIS [None]
  - MEDICATION ERROR [None]
